FAERS Safety Report 12452879 (Version 2)
Quarter: 2016Q2

REPORT INFORMATION
  Report Type: Spontaneous
  Country: GB (occurrence: GB)
  Receive Date: 20160609
  Receipt Date: 20160629
  Transmission Date: 20160815
  Serious: Yes (Other)
  Sender: FDA-Public Use
  Company Number: GB-BMSGILMSD-2016-0217330

PATIENT
  Sex: Male

DRUGS (1)
  1. ATRIPLA [Suspect]
     Active Substance: EFAVIRENZ\EMTRICITABINE\TENOFOVIR DISOPROXIL FUMARATE
     Indication: HIV INFECTION
     Dosage: 1 DF, QD
     Route: 065
     Dates: start: 20060821

REACTIONS (4)
  - Gastrectomy [Unknown]
  - Drug dose omission [Unknown]
  - Malaise [Unknown]
  - Gastric cancer [Unknown]

NARRATIVE: CASE EVENT DATE: 2016
